FAERS Safety Report 20382198 (Version 4)
Quarter: 2022Q1

REPORT INFORMATION
  Report Type: Spontaneous
  Country: US (occurrence: US)
  Receive Date: 20220127
  Receipt Date: 20220329
  Transmission Date: 20220423
  Serious: No
  Sender: FDA-Public Use
  Company Number: US-BRISTOL-MYERS SQUIBB COMPANY-BMS-2022-012028

PATIENT
  Age: 63 Year
  Sex: Male

DRUGS (2)
  1. ORENCIA [Suspect]
     Active Substance: ABATACEPT
     Indication: Rheumatoid arthritis
     Route: 058
     Dates: start: 20220124
  2. ORENCIA [Suspect]
     Active Substance: ABATACEPT
     Route: 058
     Dates: start: 20220210

REACTIONS (5)
  - Joint swelling [Unknown]
  - Arthralgia [Unknown]
  - Peripheral swelling [Unknown]
  - Gait disturbance [Unknown]
  - Rheumatoid arthritis [Unknown]
